FAERS Safety Report 9379855 (Version 2)
Quarter: 2013Q3

REPORT INFORMATION
  Report Type: Spontaneous
  Country: US (occurrence: None)
  Receive Date: 20130627
  Receipt Date: 20130722
  Transmission Date: 20140515
  Serious: Yes (Hospitalization)
  Sender: FDA-Public Use
  Company Number: 2013SGN00366

PATIENT
  Age: 17 Year
  Sex: Female
  Weight: 63 kg

DRUGS (2)
  1. BRENTUXIMAB VEDOTIN (BRENTUXIMAB VEDOTIN) INJECTION [Suspect]
     Indication: HODGKIN^S DISEASE
     Route: 042
     Dates: start: 20130430, end: 20130430
  2. GEMCITABINE (GEMCITABINE) [Suspect]
     Indication: HODGKIN^S DISEASE
     Route: 042
     Dates: start: 20130430, end: 20130430

REACTIONS (17)
  - White blood cell count decreased [None]
  - Sepsis [None]
  - Hypocalcaemia [None]
  - Anaemia [None]
  - Aspartate aminotransferase increased [None]
  - Hypotension [None]
  - Alanine aminotransferase increased [None]
  - Lymphocyte count decreased [None]
  - Device related infection [None]
  - Urine abnormality [None]
  - Urine leukocyte esterase positive [None]
  - White blood cells urine [None]
  - Bacterial test positive [None]
  - Tachycardia [None]
  - Hypoalbuminaemia [None]
  - Hypokalaemia [None]
  - Neutrophil count decreased [None]
